FAERS Safety Report 16687231 (Version 1)
Quarter: 2019Q3

REPORT INFORMATION
  Report Type: Spontaneous
  Country: US (occurrence: US)
  Receive Date: 20190624
  Receipt Date: 20190624
  Transmission Date: 20191004
  Serious: Yes (Congenital Anomaly, Other)
  Sender: FDA-Public Use
  Company Number: None

PATIENT
  Age: 4 Month
  Sex: Male
  Weight: 1.21 kg

DRUGS (2)
  1. LAMICTAL [Suspect]
     Active Substance: LAMOTRIGINE
  2. CYMBALTA [Suspect]
     Active Substance: DULOXETINE HYDROCHLORIDE

REACTIONS (5)
  - Congenital anomaly [None]
  - Right ventricular hypertrophy [None]
  - Pulmonary valve stenosis [None]
  - Atrial septal defect [None]
  - Maternal drugs affecting foetus [None]

NARRATIVE: CASE EVENT DATE: 20180604
